FAERS Safety Report 4386104-0 (Version None)
Quarter: 2004Q2

REPORT INFORMATION
  Report Type: 
  Country: None (occurrence: None)
  Receive Date: 20040625
  Receipt Date: 20040625
  Transmission Date: 20050107
  Serious: Yes (Death)
  Sender: FDA-Public Use
  Company Number: None

PATIENT
  Age: 20 Year
  Sex: Female
  Weight: 79.3795 kg

DRUGS (1)
  1. ACCUTANE [Suspect]

REACTIONS (1)
  - COMPLETED SUICIDE [None]
